FAERS Safety Report 24855957 (Version 2)
Quarter: 2025Q1

REPORT INFORMATION
  Report Type: Spontaneous
  Country: JP (occurrence: JP)
  Receive Date: 20250117
  Receipt Date: 20250321
  Transmission Date: 20250409
  Serious: Yes (Hospitalization, Other)
  Sender: TAKEDA
  Company Number: JP-TAKEDA-2025TJP000353

PATIENT
  Age: 57 Year
  Sex: Male

DRUGS (2)
  1. FRUZAQLA [Suspect]
     Active Substance: FRUQUINTINIB
     Indication: Colon cancer
  2. FRUZAQLA [Suspect]
     Active Substance: FRUQUINTINIB

REACTIONS (2)
  - Myocardial infarction [Recovered/Resolved]
  - Influenza [Recovered/Resolved]

NARRATIVE: CASE EVENT DATE: 20241228
